FAERS Safety Report 9876360 (Version 1)
Quarter: 2014Q1

REPORT INFORMATION
  Report Type: Spontaneous
  Country: US (occurrence: None)
  Receive Date: 20140205
  Receipt Date: 20140205
  Transmission Date: 20141002
  Serious: Yes (Other)
  Sender: FDA-Public Use
  Company Number: None

PATIENT
  Age: 23 Year
  Sex: Female

DRUGS (1)
  1. ZIPRASIDONE [Suspect]
     Indication: BIPOLAR DISORDER
     Dosage: 80MG  DAILY  ORAL
     Route: 048
     Dates: start: 20140124

REACTIONS (6)
  - Irritability [None]
  - Condition aggravated [None]
  - Impulsive behaviour [None]
  - Poor personal hygiene [None]
  - Treatment noncompliance [None]
  - Product substitution issue [None]
